FAERS Safety Report 24318456 (Version 1)
Quarter: 2024Q3

REPORT INFORMATION
  Report Type: Spontaneous
  Country: CA (occurrence: CA)
  Receive Date: 20240913
  Receipt Date: 20240913
  Transmission Date: 20241017
  Serious: Yes (Death)
  Sender: PFIZER
  Company Number: CA-PFIZER INC-202400255494

PATIENT
  Age: 91 Year
  Sex: Male

DRUGS (7)
  1. VYNDAQEL [Suspect]
     Active Substance: TAFAMIDIS MEGLUMINE
     Indication: Cardiac amyloidosis
     Dosage: 80 MG 1X/DAY (4X 20MG CAPSULES)
     Route: 048
     Dates: start: 20220524, end: 2024
  2. FUROSEMIDE [Concomitant]
     Active Substance: FUROSEMIDE
  3. AMLODIPINE [Concomitant]
     Active Substance: AMLODIPINE BESYLATE
  4. ATORVASTATIN [Concomitant]
     Active Substance: ATORVASTATIN
  5. ELIQUIS [Concomitant]
     Active Substance: APIXABAN
  6. MIRTAZAPINE [Concomitant]
     Active Substance: MIRTAZAPINE
  7. FINASTERIDE [Concomitant]
     Active Substance: FINASTERIDE

REACTIONS (1)
  - Death [Fatal]

NARRATIVE: CASE EVENT DATE: 20240901
